FAERS Safety Report 7157521-0 (Version None)
Quarter: 2010Q4

REPORT INFORMATION
  Report Type: 
  Country: None (occurrence: None)
  Receive Date: 20101214
  Receipt Date: 20100216
  Transmission Date: 20110411
  Serious: No
  Sender: FDA-Public Use
  Company Number: US-ASTRAZENECA-2010SE07018

PATIENT
  Age: 53 Year
  Sex: Male
  Weight: 86.2 kg

DRUGS (6)
  1. CRESTOR [Suspect]
     Indication: BLOOD CHOLESTEROL INCREASED
     Route: 048
     Dates: start: 20091201
  2. TESTIM [Suspect]
     Indication: BLOOD TESTOSTERONE DECREASED
     Route: 062
     Dates: start: 20070101
  3. FLOMAX [Concomitant]
  4. AVODART [Concomitant]
  5. CABERGOLINE [Concomitant]
     Indication: HYPOTHALAMO-PITUITARY DISORDER
  6. PRILOSEC [Concomitant]

REACTIONS (2)
  - BLOOD PROLACTIN INCREASED [None]
  - BLOOD TESTOSTERONE INCREASED [None]
